FAERS Safety Report 22071765 (Version 2)
Quarter: 2023Q4

REPORT INFORMATION
  Report Type: Report from Study
  Country: CA (occurrence: CA)
  Receive Date: 20230307
  Receipt Date: 20231130
  Transmission Date: 20240109
  Serious: Yes (Other)
  Sender: FDA-Public Use
  Company Number: CA-JNJFOC-20230305346

PATIENT
  Age: 74 Year
  Sex: Female

DRUGS (2)
  1. SIMPONI [Suspect]
     Active Substance: GOLIMUMAB
     Indication: Rheumatoid arthritis
     Route: 058
     Dates: start: 20211011
  2. SIMPONI [Suspect]
     Active Substance: GOLIMUMAB
     Dosage: 50MG/0.5ML /MONTHLY
     Route: 058
     Dates: start: 20211110

REACTIONS (3)
  - COVID-19 [Unknown]
  - Cystitis [Unknown]
  - Cholelithiasis [Unknown]
